FAERS Safety Report 17661084 (Version 4)
Quarter: 2020Q3

REPORT INFORMATION
  Report Type: Spontaneous
  Country: US (occurrence: US)
  Receive Date: 20200413
  Receipt Date: 20200902
  Transmission Date: 20201102
  Serious: No
  Sender: FDA-Public Use
  Company Number: US-VERTEX PHARMACEUTICALS-2020-008244

PATIENT
  Age: 31 Year
  Sex: Male
  Weight: 82 kg

DRUGS (8)
  1. TOBI [Concomitant]
     Active Substance: TOBRAMYCIN
     Dosage: UNK
  2. ZENPEP [Concomitant]
     Active Substance: PANCRELIPASE AMYLASE\PANCRELIPASE LIPASE\PANCRELIPASE PROTEASE
     Dosage: UNK
  3. ALBUTEROL SULFATE. [Concomitant]
     Active Substance: ALBUTEROL SULFATE
     Dosage: UNK
  4. AZITHROMYCIN ANHYDROUS. [Concomitant]
     Active Substance: AZITHROMYCIN ANHYDROUS
     Dosage: UNK
  5. ADVAIR HFA [Concomitant]
     Active Substance: FLUTICASONE PROPIONATE\SALMETEROL XINAFOATE
     Dosage: UNK
  6. TRIKAFTA [Suspect]
     Active Substance: ELEXACAFTOR\IVACAFTOR\TEZACAFTOR
     Indication: CYSTIC FIBROSIS
     Dosage: 2 ORANGE TABLETS IN AM, 1 BLUE TABLET IN PM
     Route: 048
     Dates: start: 20200325
  7. RHINOCORT AQUA [Concomitant]
     Active Substance: BUDESONIDE
     Dosage: UNK
  8. PULMOZYME [Concomitant]
     Active Substance: DORNASE ALFA
     Dosage: UNK

REACTIONS (6)
  - Dry eye [Recovered/Resolved]
  - Insomnia [Recovered/Resolved]
  - Hot flush [Recovered/Resolved]
  - Dry skin [Recovered/Resolved]
  - Thirst [Unknown]
  - Productive cough [Recovered/Resolved]

NARRATIVE: CASE EVENT DATE: 2020
